FAERS Safety Report 7759772-0 (Version None)
Quarter: 2011Q3

REPORT INFORMATION
  Report Type: 
  Country: None (occurrence: None)
  Receive Date: 20110919
  Receipt Date: 20110915
  Transmission Date: 20111222
  Serious: Yes (Life-Threatening, Disabling, Other)
  Sender: FDA-Public Use
  Company Number: PHHY2011GB14965

PATIENT
  Age: 78 Year
  Sex: Male

DRUGS (7)
  1. ATORVASTATIN [Suspect]
     Indication: HYPERCHOLESTEROLAEMIA
     Dosage: 10 MG, UNK
     Route: 048
  2. AMLODIPINE [Concomitant]
     Dosage: 5 MG, QD
     Route: 048
  3. NAPROXEN [Concomitant]
     Dosage: 250 MG, BID
     Route: 048
  4. OMEPRAZOLE [Concomitant]
     Dosage: 20 MG, QD
     Route: 048
  5. ALLOPURINOL [Concomitant]
     Dosage: 300 MG, QD
     Route: 048
  6. LEVOTHYROXINE SODIUM [Concomitant]
     Dosage: 50 UG, QD
     Route: 048
  7. SIMVASTATIN [Suspect]
     Indication: HYPERCHOLESTEROLAEMIA
     Dosage: UNK UKN, UNK

REACTIONS (7)
  - BLOOD THYROID STIMULATING HORMONE ABNORMAL [None]
  - INTERSTITIAL LUNG DISEASE [None]
  - GOUT [None]
  - PULMONARY FIBROSIS [None]
  - BLOOD IMMUNOGLOBULIN E INCREASED [None]
  - DYSPNOEA [None]
  - HYPERCHOLESTEROLAEMIA [None]
